FAERS Safety Report 10736567 (Version 1)
Quarter: 2015Q1

REPORT INFORMATION
  Report Type: Spontaneous
  Country: US (occurrence: None)
  Receive Date: 20150112
  Receipt Date: 20150112
  Transmission Date: 20150721
  Serious: Yes (Hospitalization, Disabling)
  Sender: FDA-Public Use
  Company Number: 1478901

PATIENT
  Age: 87 Year
  Sex: Female
  Weight: 79.83 kg

DRUGS (2)
  1. LABETALOL(LABETALOL) [Concomitant]
  2. ALTEPLASE (ALTEPLASE) (INFUSION, SOLUTION) [Suspect]
     Active Substance: ALTEPLASE
     Indication: CEREBROVASCULAR ACCIDENT
     Dosage: 1 IN 1 DAY INTRAVENOUS BOLUS
     Route: 042
     Dates: start: 20141007, end: 20141007

REACTIONS (1)
  - Haemorrhage intracranial [None]

NARRATIVE: CASE EVENT DATE: 20141007
